FAERS Safety Report 7497908-X (Version None)
Quarter: 2011Q2

REPORT INFORMATION
  Report Type: 
  Country: None (occurrence: None)
  Receive Date: 20110524
  Receipt Date: 20110517
  Transmission Date: 20111010
  Serious: Yes (Hospitalization)
  Sender: FDA-Public Use
  Company Number: US-BIOGENIDEC-2011BI016350

PATIENT
  Age: 36 Year
  Sex: Female
  Weight: 52 kg

DRUGS (15)
  1. KLONOPIN [Concomitant]
     Route: 048
  2. TYSABRI [Suspect]
     Indication: MULTIPLE SCLEROSIS
     Route: 042
     Dates: start: 20070608
  3. PROZAC [Concomitant]
  4. DIAZEPAM [Concomitant]
     Route: 048
  5. BOTOX [Concomitant]
     Indication: BLADDER DISORDER
  6. TYSABRI [Suspect]
     Route: 042
     Dates: start: 20050118, end: 20050218
  7. VICODIN [Concomitant]
     Route: 048
  8. ESTRADIOL [Concomitant]
  9. LAMICTAL [Concomitant]
  10. LAMICTAL [Concomitant]
  11. LAMICTAL [Concomitant]
  12. WELLBUTRIN [Concomitant]
  13. MINOCYCLINE HCL [Concomitant]
  14. TRAZODONE HCL [Concomitant]
  15. TIZANIDINE HCL [Concomitant]
     Route: 048

REACTIONS (3)
  - MULTIPLE SCLEROSIS RELAPSE [None]
  - DIZZINESS [None]
  - SYNCOPE [None]
